FAERS Safety Report 9782270 (Version 2)
Quarter: 2013Q4

REPORT INFORMATION
  Report Type: Report from Study
  Country: FR (occurrence: FR)
  Receive Date: 20131226
  Receipt Date: 20131227
  Transmission Date: 20140711
  Serious: Yes (Hospitalization)
  Sender: FDA-Public Use
  Company Number: FR-VERTEX PHARMACEUTICALS INC-2013-012000

PATIENT
  Age: 59 Year
  Sex: Female
  Weight: 60 kg

DRUGS (12)
  1. VX-950 (TELAPREVIR) [Suspect]
     Indication: HEPATITIS C
     Dosage: 2250 MG, QD
     Dates: start: 20110720
  2. PEGASYS [Suspect]
     Indication: HEPATITIS C
     Dosage: DOSAGE FORM: UNSPECIFIED
     Route: 065
     Dates: start: 20110720
  3. COPEGUS [Suspect]
     Indication: HEPATITIS C
     Dosage: DOSAGE FORM: UNSPECIFIED
     Route: 065
     Dates: start: 20110720
  4. MOTILIUM [Suspect]
     Indication: NAUSEA
     Dosage: 10 MG, TID
     Route: 065
     Dates: start: 20110817
  5. NEORECORMON [Suspect]
     Indication: ANAEMIA
     Dosage: DOSAGE FORM: UNSPECIFIED
     Route: 065
     Dates: start: 20110720
  6. LEVOTHYROX [Suspect]
     Indication: HYPERTHYROIDISM
     Dosage: DOSAGE FORM: UNSPECIFIED
     Route: 065
     Dates: start: 2004
  7. INEXIUM [Suspect]
     Indication: GASTROOESOPHAGEAL REFLUX DISEASE
     Dosage: DOSAGE FORM: UNSPECIFIED
     Route: 065
     Dates: start: 20110724, end: 20110817
  8. DEROXAT [Suspect]
     Indication: DEPRESSION
     Dosage: UNK, QD
     Route: 065
  9. DEROXAT [Suspect]
     Dosage: DOSAGE FORM: UNSPECIFIED
     Route: 065
     Dates: start: 20110817
  10. SPECIAFOLDINE [Suspect]
     Indication: VITAMIN B12 DEFICIENCY
     Dosage: DOSAGE FORM: UNSPECIFIED
     Route: 065
     Dates: start: 20110817
  11. AZANTAC [Suspect]
     Indication: GASTROOESOPHAGEAL REFLUX DISEASE
     Dosage: DOSAGE FORM: UNSPECIFIED
     Route: 065
     Dates: start: 20110817
  12. RANIPLEX [Suspect]
     Indication: GASTROOESOPHAGEAL REFLUX DISEASE
     Dosage: DOSAGE FORM: UNSPECIFIED
     Route: 065
     Dates: start: 20110817

REACTIONS (3)
  - Asthenia [Recovered/Resolved]
  - Pelvic haemorrhage [Unknown]
  - Anaemia [Recovered/Resolved]
